FAERS Safety Report 8916570 (Version 2)
Quarter: 2012Q4

REPORT INFORMATION
  Report Type: 
  Country: JP (occurrence: JP)
  Receive Date: 20121120
  Receipt Date: 20121221
  Transmission Date: 20130627
  Serious: Yes (Hospitalization, Other)
  Sender: FDA-Public Use
  Company Number: JP-ROCHE-1063745

PATIENT
  Age: 76 Year
  Sex: Male
  Weight: 42 kg

DRUGS (6)
  1. AVASTIN [Suspect]
     Indication: RECTAL CANCER METASTATIC
     Route: 041
     Dates: start: 20120215, end: 20120328
  2. LOXONIN [Suspect]
     Indication: PAIN
     Route: 048
     Dates: start: 20110508, end: 20120426
  3. OMEPRAL [Concomitant]
     Indication: GASTRIC ULCER
     Route: 048
     Dates: start: 20110426, end: 20110426
  4. PYDOXAL [Concomitant]
     Indication: NEUROPATHY PERIPHERAL
     Route: 048
     Dates: start: 20110606, end: 20120426
  5. TS-1 [Concomitant]
     Indication: RECTAL CANCER METASTATIC
     Route: 048
     Dates: start: 20120215, end: 20120418
  6. IRINOTECAN HYDROCHLORIDE [Concomitant]
     Indication: RECTAL CANCER METASTATIC
     Route: 041
     Dates: start: 20120215, end: 20120418

REACTIONS (4)
  - Gastrointestinal perforation [Recovered/Resolved]
  - Pyrexia [Unknown]
  - Pain [Unknown]
  - C-reactive protein increased [Unknown]
